FAERS Safety Report 18012739 (Version 1)
Quarter: 2020Q3

REPORT INFORMATION
  Report Type: Spontaneous
  Country: US (occurrence: US)
  Receive Date: 20200710
  Receipt Date: 20200710
  Transmission Date: 20201103
  Serious: No
  Sender: FDA-Public Use
  Company Number: None

PATIENT
  Age: 66 Year
  Sex: Female
  Weight: 87.75 kg

DRUGS (4)
  1. ASSURED INSTANT HAND SANITIZER ALOE AND MOISTURIZERS [Suspect]
     Active Substance: ALCOHOL
     Indication: INFECTION PROPHYLAXIS
     Dosage: ?          OTHER STRENGTH:8 OUNCES;?
     Route: 061
     Dates: start: 20200708, end: 20200709
  2. ONE DAILY MULTIVITAMIN/MULTIMINERAL SUPPLEMENT WOMEN^S HEALTH [Concomitant]
  3. DORZOLAMIDE HCI?TIMOLOL MALEATE OPHTHALMIC SOLUTION [Concomitant]
  4. IBUPROFEN. [Concomitant]
     Active Substance: IBUPROFEN

REACTIONS (5)
  - Vomiting [None]
  - Product quality issue [None]
  - Nausea [None]
  - Recalled product [None]
  - Migraine [None]

NARRATIVE: CASE EVENT DATE: 20200709
